FAERS Safety Report 9685860 (Version 1)
Quarter: 2013Q4

REPORT INFORMATION
  Report Type: Spontaneous
  Country: US (occurrence: US)
  Receive Date: 20131113
  Receipt Date: 20131113
  Transmission Date: 20140711
  Serious: Yes (Hospitalization)
  Sender: FDA-Public Use
  Company Number: US-B.I. PHARMACEUTICALS,INC./RIDGEFIELD-2013-BI-36159BP

PATIENT
  Sex: Female
  Weight: 73 kg

DRUGS (1)
  1. COMBIVENT [Suspect]
     Indication: BRONCHIECTASIS
     Dosage: STRENGTH: 18 MCG / 103 MCG;
     Route: 055
     Dates: start: 1998

REACTIONS (3)
  - Aortic valve incompetence [Recovered/Resolved]
  - Atrial fibrillation [Not Recovered/Not Resolved]
  - Off label use [Not Recovered/Not Resolved]
